FAERS Safety Report 15459404 (Version 2)
Quarter: 2019Q4

REPORT INFORMATION
  Report Type: Spontaneous
  Country: US (occurrence: US)
  Receive Date: 20181003
  Receipt Date: 20191022
  Transmission Date: 20200122
  Serious: Yes (Other)
  Sender: FDA-Public Use
  Company Number: US-ENDO PHARMACEUTICALS INC-2018-040918

PATIENT
  Age: 51 Year
  Sex: Male
  Weight: 64.85 kg

DRUGS (1)
  1. VALSTAR [Suspect]
     Active Substance: VALRUBICIN
     Indication: BLADDER CANCER
     Dosage: UNK, ONCE A WEEK FOR 6 WEEKS
     Route: 043
     Dates: start: 20120203, end: 20120309

REACTIONS (6)
  - Condition aggravated [Not Recovered/Not Resolved]
  - Drug ineffective [Recovered/Resolved]
  - Disease progression [Not Recovered/Not Resolved]
  - Bladder cancer [Not Recovered/Not Resolved]
  - Dysuria [Recovered/Resolved]
  - Instillation site pain [Recovered/Resolved]

NARRATIVE: CASE EVENT DATE: 20120203
